FAERS Safety Report 6688856-3 (Version None)
Quarter: 2010Q2

REPORT INFORMATION
  Report Type: 
  Country: None (occurrence: None)
  Receive Date: 20100420
  Receipt Date: 20100406
  Transmission Date: 20101027
  Serious: Yes (Hospitalization)
  Sender: FDA-Public Use
  Company Number: ES-ELI_LILLY_AND_COMPANY-ES201004001472

PATIENT
  Sex: Male
  Weight: 84 kg

DRUGS (6)
  1. FORTEO [Suspect]
     Indication: OSTEOPOROSIS
     Dosage: 20 UG, DAILY (1/D)
     Route: 058
     Dates: start: 20080505, end: 20100201
  2. LORAZEPAM [Concomitant]
     Indication: INSOMNIA
     Dosage: UNK, UNKNOWN
     Route: 065
  3. SYMBICORT [Concomitant]
     Indication: EMPHYSEMA
     Dosage: UNK, UNKNOWN
     Route: 065
  4. SPIRIVA [Concomitant]
     Indication: EMPHYSEMA
     Dosage: UNK, UNKNOWN
     Route: 065
  5. CITALOPRAM HYDROBROMIDE [Concomitant]
     Indication: DEPRESSION
     Dosage: UNK, UNKNOWN
     Route: 065
  6. AMIODARONE HCL [Concomitant]
     Dosage: UNK, UNKNOWN
     Route: 065

REACTIONS (1)
  - PROSTATE CANCER [None]
